APPROVED DRUG PRODUCT: HYDRALAZINE HYDROCHLORIDE
Active Ingredient: HYDRALAZINE HYDROCHLORIDE
Strength: 20MG/ML
Dosage Form/Route: INJECTABLE;INJECTION
Application: A040373 | Product #001
Applicant: TEVA PARENTERAL MEDICINES INC
Approved: Feb 23, 2000 | RLD: No | RS: No | Type: DISCN